FAERS Safety Report 16905263 (Version 1)
Quarter: 2019Q4

REPORT INFORMATION
  Report Type: Spontaneous
  Country: US (occurrence: US)
  Receive Date: 20191010
  Receipt Date: 20191010
  Transmission Date: 20200122
  Serious: No
  Sender: FDA-Public Use
  Company Number: US-SA-2019SA275513

PATIENT
  Age: 24 Year
  Sex: Female

DRUGS (9)
  1. MOMETASONE [Concomitant]
     Active Substance: MOMETASONE
  2. SERTRALINE [Concomitant]
     Active Substance: SERTRALINE HYDROCHLORIDE
  3. DUPIXENT [Suspect]
     Active Substance: DUPILUMAB
     Dosage: 300 MG, QOW
     Route: 058
     Dates: start: 20190626
  4. LEVOCETIRIZIN [Concomitant]
     Active Substance: LEVOCETIRIZINE DIHYDROCHLORIDE
  5. MONTELUKAST [Concomitant]
     Active Substance: MONTELUKAST SODIUM
  6. ALVESCO [Concomitant]
     Active Substance: CICLESONIDE
  7. PROTOPIC [Concomitant]
     Active Substance: TACROLIMUS
  8. MUPIROCIN. [Concomitant]
     Active Substance: MUPIROCIN
  9. EUCRISA [Concomitant]
     Active Substance: CRISABOROLE

REACTIONS (1)
  - Condition aggravated [Not Recovered/Not Resolved]
